FAERS Safety Report 10335560 (Version 1)
Quarter: 2014Q3

REPORT INFORMATION
  Report Type: Spontaneous
  Country: US (occurrence: US)
  Receive Date: 20140723
  Receipt Date: 20140723
  Transmission Date: 20150326
  Serious: No
  Sender: FDA-Public Use
  Company Number: US-UNITED THERAPEUTICS-UTC-047658

PATIENT
  Sex: Female

DRUGS (1)
  1. REMODULIN [Suspect]
     Active Substance: TREPROSTINIL
     Dosage: 0.032 UG/KG/MIN
     Route: 041
     Dates: start: 20130627

REACTIONS (5)
  - Pain in extremity [Unknown]
  - Nasal congestion [Unknown]
  - Nasopharyngitis [Unknown]
  - Headache [Unknown]
  - Oropharyngeal pain [Unknown]
